FAERS Safety Report 15134924 (Version 1)
Quarter: 2018Q3

REPORT INFORMATION
  Report Type: Report from Study
  Country: US (occurrence: US)
  Receive Date: 20180712
  Receipt Date: 20180712
  Transmission Date: 20181010
  Serious: Yes (Death, Hospitalization)
  Sender: FDA-Public Use
  Company Number: US-ROCHE-2152759

PATIENT
  Sex: Male

DRUGS (8)
  1. VINCRISTINE [Concomitant]
     Active Substance: VINCRISTINE
  2. ETOPOSIDE. [Concomitant]
     Active Substance: ETOPOSIDE
  3. LEVAQUIN [Concomitant]
     Active Substance: LEVOFLOXACIN
  4. CYTOXAN [Concomitant]
     Active Substance: CYCLOPHOSPHAMIDE
  5. LASIX [Concomitant]
     Active Substance: FUROSEMIDE
     Route: 065
  6. VENCLEXTA [Suspect]
     Active Substance: VENETOCLAX
     Indication: CHRONIC LYMPHOCYTIC LEUKAEMIA
     Dosage: ONGOING?UNKNOWN
     Route: 065
  7. RITUXAN [Suspect]
     Active Substance: RITUXIMAB
     Indication: CHRONIC LYMPHOCYTIC LEUKAEMIA
     Route: 065
  8. ELIQUIS [Concomitant]
     Active Substance: APIXABAN
     Route: 065

REACTIONS (8)
  - Death [Fatal]
  - Swelling [Unknown]
  - Dyspnoea [Unknown]
  - Oedema [Unknown]
  - Deep vein thrombosis [Unknown]
  - Cardiac failure congestive [Unknown]
  - Lymphadenopathy [Unknown]
  - Dyspnoea exertional [Unknown]
